FAERS Safety Report 9319903 (Version 1)
Quarter: 2013Q2

REPORT INFORMATION
  Report Type: Spontaneous
  Country: GB (occurrence: GB)
  Receive Date: 20130530
  Receipt Date: 20130530
  Transmission Date: 20140414
  Serious: Yes (Life-Threatening)
  Sender: FDA-Public Use
  Company Number: GB-TEVA-408095ISR

PATIENT
  Age: 48 Year
  Sex: Male
  Weight: 93 kg

DRUGS (2)
  1. METOPROLOL [Suspect]
     Indication: ATRIAL FLUTTER
     Route: 048
     Dates: start: 20121017, end: 20130502
  2. FLECAINIDE [Concomitant]

REACTIONS (3)
  - Suicidal ideation [Not Recovered/Not Resolved]
  - Depression [Recovering/Resolving]
  - Suicide attempt [Recovered/Resolved]
